FAERS Safety Report 5346782-6 (Version None)
Quarter: 2007Q2

REPORT INFORMATION
  Report Type: 
  Country: None (occurrence: None)
  Receive Date: 20070605
  Receipt Date: 20070525
  Transmission Date: 20071010
  Serious: Yes (Hospitalization)
  Sender: FDA-Public Use
  Company Number: FR-PFIZER INC-2007043605

PATIENT
  Sex: Female
  Weight: 46 kg

DRUGS (6)
  1. VORICONAZOLE [Suspect]
     Indication: BRONCHOPULMONARY ASPERGILLOSIS
     Route: 048
  2. PANTOPRAZOLE SODIUM [Concomitant]
  3. ACAMPROSATE [Concomitant]
     Route: 048
     Dates: start: 20070404, end: 20070503
  4. VALIUM [Concomitant]
     Dates: start: 20070419
  5. TARDYFERON [Concomitant]
     Route: 048
     Dates: start: 20070419, end: 20070503
  6. ATHYMIL [Concomitant]
     Dates: start: 20070419

REACTIONS (2)
  - ANOREXIA [None]
  - ARTHRALGIA [None]
